FAERS Safety Report 4683257-1 (Version None)
Quarter: 2005Q2

REPORT INFORMATION
  Report Type: 
  Country: None (occurrence: None)
  Receive Date: 20050602
  Receipt Date: 20040207
  Transmission Date: 20051028
  Serious: No
  Sender: FDA-Public Use
  Company Number: USA050290146

PATIENT
  Age: 80 Year
  Sex: Female

DRUGS (9)
  1. CYMBALTA [Suspect]
     Indication: DEPRESSION
     Dosage: 30 MG DAY
     Dates: start: 20050127
  2. PAXIL [Concomitant]
  3. AMIODARONE [Concomitant]
  4. ZOCOR (SIMVASTATIN RATIOPHARM) [Concomitant]
  5. WARFARIN SODIUM [Concomitant]
  6. FOSAMAX [Concomitant]
  7. CALCIUM GLUCONATE [Concomitant]
  8. ARICEPT [Concomitant]
  9. ICAPS [Concomitant]

REACTIONS (3)
  - ABNORMAL DREAMS [None]
  - AGITATION [None]
  - HEART RATE IRREGULAR [None]
